FAERS Safety Report 19980591 (Version 1)
Quarter: 2021Q4

REPORT INFORMATION
  Report Type: Spontaneous
  Country: US (occurrence: US)
  Receive Date: 20211021
  Receipt Date: 20211021
  Transmission Date: 20220303
  Serious: Yes (Other)
  Sender: FDA-Public Use
  Company Number: US-ABBVIE-21K-163-4124035-00

PATIENT
  Sex: Female

DRUGS (1)
  1. HUMIRA [Suspect]
     Active Substance: ADALIMUMAB
     Indication: Psoriatic arthropathy
     Route: 058

REACTIONS (7)
  - Anal haemorrhage [Unknown]
  - Spinal fusion surgery [Unknown]
  - Spinal stenosis [Unknown]
  - Autoimmune disorder [Unknown]
  - Presyncope [Unknown]
  - Pain [Unknown]
  - Drug hypersensitivity [Unknown]
